FAERS Safety Report 17842686 (Version 1)
Quarter: 2020Q2

REPORT INFORMATION
  Report Type: Report from Study
  Country: None (occurrence: US)
  Receive Date: 20200530
  Receipt Date: 20200530
  Transmission Date: 20200714
  Serious: Yes (Hospitalization)
  Sender: FDA-Public Use
  Company Number: US-ABBVIE-20K-163-3319775-00

PATIENT
  Sex: Female

DRUGS (4)
  1. HUMIRA [Suspect]
     Active Substance: ADALIMUMAB
     Indication: PSORIASIS
  2. HUMIRA [Suspect]
     Active Substance: ADALIMUMAB
     Indication: RHEUMATOID ARTHRITIS
     Dosage: DAY 1
     Route: 058
     Dates: start: 20200217, end: 20200217
  3. HUMIRA [Suspect]
     Active Substance: ADALIMUMAB
     Indication: PSORIASIS
  4. HUMIRA [Suspect]
     Active Substance: ADALIMUMAB
     Indication: RHEUMATOID ARTHRITIS
     Dosage: DAY 8
     Route: 058
     Dates: start: 20200224

REACTIONS (13)
  - Hyperhidrosis [Recovered/Resolved]
  - General physical condition abnormal [Unknown]
  - Cough [Unknown]
  - Psoriasis [Recovering/Resolving]
  - Fatigue [Unknown]
  - Skin irritation [Not Recovered/Not Resolved]
  - Dysgeusia [Unknown]
  - Nail discolouration [Unknown]
  - Erythema [Unknown]
  - Pain [Not Recovered/Not Resolved]
  - Haemorrhage [Unknown]
  - Hallucination [Unknown]
  - Arthralgia [Unknown]

NARRATIVE: CASE EVENT DATE: 2020
